FAERS Safety Report 10622185 (Version 1)
Quarter: 2014Q4

REPORT INFORMATION
  Report Type: Spontaneous
  Country: US (occurrence: None)
  Receive Date: 20141201
  Receipt Date: 20141201
  Transmission Date: 20150529
  Serious: No
  Sender: FDA-Public Use
  Company Number: None

PATIENT
  Age: 64 Year
  Sex: Male
  Weight: 125.8 kg

DRUGS (1)
  1. IBRUTINIB [Suspect]
     Active Substance: IBRUTINIB
     Indication: MANTLE CELL LYMPHOMA
     Route: 048
     Dates: start: 20140509, end: 20140830

REACTIONS (6)
  - Dyspnoea [None]
  - Haemoptysis [None]
  - Orthopnoea [None]
  - Upper respiratory tract infection [None]
  - Cough [None]
  - Bronchitis [None]

NARRATIVE: CASE EVENT DATE: 20140830
